FAERS Safety Report 18781532 (Version 5)
Quarter: 2021Q4

REPORT INFORMATION
  Report Type: Report from Study
  Country: JP (occurrence: JP)
  Receive Date: 20210125
  Receipt Date: 20211215
  Transmission Date: 20220303
  Serious: Yes (Death, Hospitalization, Other)
  Sender: FDA-Public Use
  Company Number: JP-KYOWAKIRIN-2021AKK000793

PATIENT
  Age: 90 Year
  Sex: Female

DRUGS (43)
  1. PEGFILGRASTIM [Suspect]
     Active Substance: PEGFILGRASTIM
     Indication: Product used for unknown indication
     Dosage: UNK
     Route: 058
     Dates: start: 20170207, end: 20170207
  2. MOGAMULIZUMAB [Suspect]
     Active Substance: MOGAMULIZUMAB
     Indication: Adult T-cell lymphoma/leukaemia
     Dosage: 1 MG/KG
     Route: 041
     Dates: start: 20180713, end: 20180713
  3. MOGAMULIZUMAB [Suspect]
     Active Substance: MOGAMULIZUMAB
     Dosage: 1 MG/KG
     Route: 041
     Dates: start: 20170104, end: 20170104
  4. MOGAMULIZUMAB [Suspect]
     Active Substance: MOGAMULIZUMAB
     Dosage: 1 MG/KG, 1X/4 WEEKS
     Route: 041
     Dates: start: 20180306, end: 20180404
  5. FILGRASTIM [Concomitant]
     Active Substance: FILGRASTIM
     Indication: Prophylaxis
     Dosage: UNK
     Route: 065
     Dates: start: 20170108, end: 20170111
  6. DEXCHLORPHENIRAMINE MALEATE [Concomitant]
     Active Substance: DEXCHLORPHENIRAMINE MALEATE
     Indication: Prophylaxis
     Dosage: UNK
     Route: 048
     Dates: start: 20170104, end: 20170104
  7. DEXCHLORPHENIRAMINE MALEATE [Concomitant]
     Active Substance: DEXCHLORPHENIRAMINE MALEATE
     Dosage: UNK UNK, 1X/4 WEEKS
     Route: 048
     Dates: start: 20180306, end: 20180404
  8. DEXCHLORPHENIRAMINE MALEATE [Concomitant]
     Active Substance: DEXCHLORPHENIRAMINE MALEATE
     Dosage: UNK
     Route: 048
     Dates: start: 20180713, end: 20180713
  9. DEXAMETHASONE SODIUM PHOSPHATE [Concomitant]
     Active Substance: DEXAMETHASONE SODIUM PHOSPHATE
     Indication: Prophylaxis
     Dosage: 6.6 MILLIGRAM
     Route: 065
     Dates: start: 20170104, end: 20170104
  10. DEXAMETHASONE SODIUM PHOSPHATE [Concomitant]
     Active Substance: DEXAMETHASONE SODIUM PHOSPHATE
     Dosage: 6.6 MG, 1X/4 WEEKS
     Route: 065
     Dates: start: 20180306, end: 20180404
  11. DEXAMETHASONE SODIUM PHOSPHATE [Concomitant]
     Active Substance: DEXAMETHASONE SODIUM PHOSPHATE
     Dosage: 6.6 MILLIGRAM
     Route: 065
     Dates: start: 20180713, end: 20180713
  12. ISCOTIN [Concomitant]
     Active Substance: ISONIAZID
     Indication: Infection prophylaxis
     Dosage: UNK
     Route: 048
     Dates: start: 20161229, end: 20170628
  13. ITRACONAZOLE [Concomitant]
     Active Substance: ITRACONAZOLE
     Indication: Infection prophylaxis
     Dosage: UNK
     Route: 048
     Dates: start: 20161229, end: 20170626
  14. SULFAMETHOXAZOLE\TRIMETHOPRIM [Concomitant]
     Active Substance: SULFAMETHOXAZOLE\TRIMETHOPRIM
     Indication: Infection prophylaxis
     Dosage: UNK
     Route: 048
     Dates: start: 20161229, end: 20170626
  15. CEFDINIR [Concomitant]
     Active Substance: CEFDINIR
     Indication: Infection prophylaxis
     Dosage: UNK
     Route: 048
     Dates: start: 20170106, end: 20170108
  16. AMLODIPINE BESYLATE [Concomitant]
     Active Substance: AMLODIPINE BESYLATE
     Dosage: UNK
     Route: 048
     Dates: end: 20170508
  17. LOXOPROFEN SODIUM [Concomitant]
     Active Substance: LOXOPROFEN SODIUM
     Indication: Pain in jaw
     Dosage: UNK
     Route: 048
     Dates: start: 20170109, end: 20170129
  18. MAGNESIUM OXIDE [Concomitant]
     Active Substance: MAGNESIUM OXIDE
     Dosage: UNK
     Route: 048
     Dates: end: 20180708
  19. XYZAL [Concomitant]
     Active Substance: LEVOCETIRIZINE DIHYDROCHLORIDE
     Indication: Prophylaxis
     Dosage: UNK
     Route: 048
     Dates: start: 20170123
  20. MIYA-BM [Concomitant]
     Active Substance: CLOSTRIDIUM BUTYRICUM SPORES STRAIN M-55
     Indication: Prophylaxis
     Dosage: UNK
     Route: 048
     Dates: start: 20170519, end: 20180528
  21. UBIDECARENONE [Concomitant]
     Active Substance: UBIDECARENONE
     Dosage: UNK
     Route: 048
     Dates: end: 20170626
  22. LYRICA [Concomitant]
     Active Substance: PREGABALIN
     Indication: Prophylaxis
     Dosage: UNK
     Route: 048
     Dates: start: 20170215, end: 20170918
  23. SENNOSIDES A AND B [Concomitant]
     Active Substance: SENNOSIDES A AND B
     Indication: Prophylaxis
     Dosage: UNK
     Route: 048
     Dates: start: 20170101, end: 20170123
  24. TRAMADOL [Concomitant]
     Active Substance: TRAMADOL
     Indication: Hot flush
     Dosage: UNK
     Route: 048
     Dates: start: 20170301, end: 20170308
  25. FEBUXOSTAT [Concomitant]
     Active Substance: FEBUXOSTAT
     Indication: Prophylaxis
     Dosage: UNK
     Route: 048
     Dates: end: 20170918
  26. PROTOPIC [Concomitant]
     Active Substance: TACROLIMUS
     Indication: Rash
     Dosage: UNK
     Route: 061
     Dates: start: 20170123, end: 20170224
  27. PETROLATUM [Concomitant]
     Active Substance: PETROLATUM
     Indication: Rash
     Dosage: UNK
     Route: 061
     Dates: start: 20170123, end: 20170407
  28. SODIUM PICOSULFATE [Concomitant]
     Active Substance: SODIUM PICOSULFATE
     Dosage: UNK
     Route: 048
     Dates: start: 20170101, end: 20170102
  29. DIPHENHYDRAMINE [Concomitant]
     Active Substance: DIPHENHYDRAMINE
     Indication: Rash
     Dosage: UNK
     Route: 061
     Dates: start: 20170122, end: 20170123
  30. RILMAZAFONE HYDROCHLORIDE [Concomitant]
     Active Substance: RILMAZAFONE HYDROCHLORIDE
     Dosage: UNK
     Route: 048
     Dates: start: 20170117
  31. FUROSEMIDE [Concomitant]
     Active Substance: FUROSEMIDE
     Indication: Prophylaxis
     Dosage: UNK
     Route: 065
     Dates: end: 20170312
  32. HEPARIN SODIUM [Concomitant]
     Active Substance: HEPARIN SODIUM
     Indication: Prophylaxis
     Dosage: UNK
     Route: 065
     Dates: end: 20170111
  33. GRANISETRON HYDROCHLORIDE [Concomitant]
     Active Substance: GRANISETRON HYDROCHLORIDE
     Indication: Prophylaxis
     Dosage: UNK
     Route: 041
     Dates: end: 20170311
  34. CEFOPERAZONE SODIUM\SULBACTAM SODIUM [Concomitant]
     Active Substance: CEFOPERAZONE SODIUM\SULBACTAM SODIUM
     Indication: Interstitial lung disease
     Dosage: UNK
     Route: 065
     Dates: start: 20170213, end: 20170219
  35. ISOTONIC SODIUM CHLORIDE SOLUTION [Concomitant]
     Active Substance: SODIUM CHLORIDE
     Indication: Interstitial lung disease
     Dosage: UNK
     Route: 065
     Dates: start: 20170213, end: 20170219
  36. RABEPRAZOLE SODIUM [Concomitant]
     Active Substance: RABEPRAZOLE SODIUM
     Indication: Prophylaxis
     Dosage: UNK
     Route: 048
     Dates: end: 20180528
  37. PREDONINE [Concomitant]
     Active Substance: PREDNISOLONE
     Indication: Prophylaxis
     Dosage: UNK
     Route: 048
     Dates: end: 20180713
  38. AMPHOTERICIN B [Concomitant]
     Active Substance: AMPHOTERICIN B
     Dosage: UNK
     Route: 048
     Dates: start: 20170518, end: 20170704
  39. LYRICA [Concomitant]
     Active Substance: PREGABALIN
     Dosage: UNK
     Route: 048
     Dates: start: 20170919
  40. CALONAL [Concomitant]
     Active Substance: ACETAMINOPHEN
     Indication: Hot flush
     Dosage: UNK
     Route: 048
     Dates: start: 20170301, end: 20170608
  41. ANAMIDOL [Concomitant]
     Indication: Rash
     Dosage: UNK
     Dates: start: 20170223, end: 20170301
  42. ANAMIDOL [Concomitant]
     Dosage: UNK
     Dates: start: 20170406, end: 20170527
  43. POVIDONE-IODINE [Concomitant]
     Active Substance: POVIDONE-IODINE
     Indication: Rash
     Dosage: UNK
     Route: 061
     Dates: start: 20170406, end: 20170407

REACTIONS (11)
  - Interstitial lung disease [Recovering/Resolving]
  - Myelosuppression [Recovered/Resolved]
  - Infusion related reaction [Fatal]
  - Constipation [Fatal]
  - Rash [Recovering/Resolving]
  - Rash [Recovering/Resolving]
  - Rash [Recovering/Resolving]
  - Rash [Recovering/Resolving]
  - Erythema [Fatal]
  - Pain in jaw [Recovered/Resolved]
  - Infusion related reaction [Recovered/Resolved]

NARRATIVE: CASE EVENT DATE: 20170108
